FAERS Safety Report 7513190-9 (Version None)
Quarter: 2011Q2

REPORT INFORMATION
  Report Type: 
  Country: None (occurrence: None)
  Receive Date: 20110531
  Receipt Date: 20110526
  Transmission Date: 20111010
  Serious: Yes (Hospitalization)
  Sender: FDA-Public Use
  Company Number: IT-SANOFI-AVENTIS-2011SA032825

PATIENT
  Age: 89 Year
  Sex: Female

DRUGS (7)
  1. DOMPERIDONE [Concomitant]
     Route: 065
  2. AMILORIDE HCL AND HYDROCHLOROTHIAZIDE [Suspect]
     Indication: HYPERTENSION
     Route: 048
     Dates: start: 20100615, end: 20100617
  3. ESOMEPRAZOLE MAGNESIUM [Concomitant]
     Route: 048
  4. LASIX [Suspect]
     Route: 048
     Dates: start: 20080617, end: 20100617
  5. RAMIPRIL [Concomitant]
     Route: 048
     Dates: start: 20080617
  6. TICLOPIDINE HCL [Concomitant]
     Route: 065
  7. LORAZEPAM [Concomitant]
     Route: 065

REACTIONS (2)
  - PSYCHOMOTOR RETARDATION [None]
  - HYPONATRAEMIA [None]
